FAERS Safety Report 5401034-0 (Version None)
Quarter: 2007Q3

REPORT INFORMATION
  Report Type: 
  Country: None (occurrence: None)
  Receive Date: 20070731
  Receipt Date: 20070723
  Transmission Date: 20080115
  Serious: Yes (Other)
  Sender: FDA-Public Use
  Company Number: JP-BAYER-200710468BYL

PATIENT
  Age: 74 Year
  Sex: Male
  Weight: 54 kg

DRUGS (4)
  1. LEVITRA [Suspect]
     Dosage: UNIT DOSE: 10 MG
     Route: 048
  2. DOGMATYL [Concomitant]
     Dosage: TOTAL DAILY DOSE: 50 MG
     Route: 048
     Dates: start: 20070401
  3. SYMMETREL [Concomitant]
     Indication: PARKINSON'S DISEASE
     Route: 048
  4. BI SIFROL [Concomitant]
     Indication: PARKINSON'S DISEASE
     Route: 048

REACTIONS (4)
  - AMIMIA [None]
  - CORNEAL REFLEX DECREASED [None]
  - FACIAL PALSY [None]
  - SALIVARY HYPERSECRETION [None]
